FAERS Safety Report 17417672 (Version 1)
Quarter: 2020Q1

REPORT INFORMATION
  Report Type: Spontaneous
  Country: US (occurrence: US)
  Receive Date: 20200214
  Receipt Date: 20200214
  Transmission Date: 20200409
  Serious: No
  Sender: FDA-Public Use
  Company Number: US-009507513-2002USA001126

PATIENT
  Age: 56 Year
  Sex: Male

DRUGS (7)
  1. KEYTRUDA [Suspect]
     Active Substance: PEMBROLIZUMAB
     Indication: ADRENAL GLAND CANCER
  2. KEYTRUDA [Suspect]
     Active Substance: PEMBROLIZUMAB
     Indication: GASTRIC CANCER
     Dosage: UNSPECIFIED DOSE ^EVERY THREE WEEKS^
     Dates: start: 20200107
  3. FLOMAX [Concomitant]
     Active Substance: TAMSULOSIN HYDROCHLORIDE
  4. XELODA [Concomitant]
     Active Substance: CAPECITABINE
     Dosage: UNK
     Dates: start: 201906, end: 201912
  5. KEYTRUDA [Suspect]
     Active Substance: PEMBROLIZUMAB
     Indication: OESOPHAGEAL CARCINOMA
  6. KEYTRUDA [Suspect]
     Active Substance: PEMBROLIZUMAB
     Indication: LUNG NEOPLASM MALIGNANT
  7. KEYTRUDA [Suspect]
     Active Substance: PEMBROLIZUMAB
     Indication: LYMPHOMA

REACTIONS (3)
  - Limb discomfort [Unknown]
  - Back disorder [Recovered/Resolved]
  - Product use in unapproved indication [Unknown]

NARRATIVE: CASE EVENT DATE: 20200107
